FAERS Safety Report 7758593-2 (Version None)
Quarter: 2011Q3

REPORT INFORMATION
  Report Type: 
  Country: None (occurrence: None)
  Receive Date: 20110919
  Receipt Date: 20110907
  Transmission Date: 20111222
  Serious: No
  Sender: FDA-Public Use
  Company Number: US-ELI_LILLY_AND_COMPANY-US201108004264

PATIENT
  Sex: Female
  Weight: 65.306 kg

DRUGS (1)
  1. CYMBALTA [Suspect]
     Indication: FIBROMYALGIA
     Dosage: 30 MG, QD
     Route: 048
     Dates: start: 20110619, end: 20110815

REACTIONS (3)
  - PROTEIN TOTAL ABNORMAL [None]
  - RENAL IMPAIRMENT [None]
  - ALOPECIA EFFLUVIUM [None]
